FAERS Safety Report 9442180 (Version 3)
Quarter: 2013Q3

REPORT INFORMATION
  Report Type: Spontaneous
  Country: US (occurrence: US)
  Receive Date: 20130806
  Receipt Date: 20130819
  Transmission Date: 20140515
  Serious: No
  Sender: FDA-Public Use
  Company Number: US-009507513-1308USA002449

PATIENT
  Age: 33 Year
  Sex: Male
  Weight: 89.8 kg

DRUGS (4)
  1. CORICIDIN HBP COUGH AND COLD [Suspect]
     Indication: COUGH
     Dosage: 1 DF, Q4H
     Route: 048
     Dates: start: 20130706, end: 20130718
  2. CORICIDIN HBP COUGH AND COLD [Suspect]
     Indication: MEDICAL OBSERVATION
  3. LISINOPRIL [Concomitant]
     Indication: HYPERTENSION
     Dosage: UNK, UNKNOWN
  4. HYDROCHLOROTHIAZIDE [Concomitant]
     Indication: HYPERTENSION
     Dosage: UNK, UNKNOWN

REACTIONS (2)
  - Condition aggravated [Unknown]
  - Drug ineffective [Unknown]
